FAERS Safety Report 9639684 (Version 2)
Quarter: 2014Q1

REPORT INFORMATION
  Report Type: Spontaneous
  Country: CA (occurrence: CA)
  Receive Date: 20131023
  Receipt Date: 20140124
  Transmission Date: 20141002
  Serious: Yes (Other)
  Sender: FDA-Public Use
  Company Number: CA-ROCHE-1292394

PATIENT
  Age: 42 Year
  Sex: Male

DRUGS (6)
  1. XOLAIR [Suspect]
     Indication: ASTHMA
     Route: 058
     Dates: start: 20130114
  2. XOLAIR [Suspect]
     Route: 058
     Dates: start: 20140121
  3. ADVAIR [Concomitant]
  4. SINGULAIR [Concomitant]
  5. SPIRIVA [Concomitant]
  6. VENTOLIN [Concomitant]

REACTIONS (2)
  - Gastroenteritis viral [Recovered/Resolved]
  - Respiratory rate increased [Unknown]
